FAERS Safety Report 24180171 (Version 1)
Quarter: 2024Q3

REPORT INFORMATION
  Report Type: Spontaneous
  Country: PT (occurrence: None)
  Receive Date: 20240806
  Receipt Date: 20240806
  Transmission Date: 20241017
  Serious: Yes (Death)
  Sender: ASTRAZENECA
  Company Number: 2024A177551

PATIENT
  Sex: Male

DRUGS (2)
  1. IMFINZI [Suspect]
     Active Substance: DURVALUMAB
     Indication: Hepatocellular carcinoma
     Route: 042
  2. IMJUDO [Suspect]
     Active Substance: TREMELIMUMAB\TREMELIMUMAB-ACTL
     Indication: Chemotherapy
     Route: 042

REACTIONS (1)
  - Death [Fatal]
